FAERS Safety Report 24580013 (Version 1)
Quarter: 2024Q4

REPORT INFORMATION
  Report Type: Spontaneous
  Country: US (occurrence: None)
  Receive Date: 20241104
  Receipt Date: 20241104
  Transmission Date: 20250114
  Serious: Yes (Hospitalization)
  Sender: Public
  Company Number: None

PATIENT
  Age: 78 Year
  Sex: Male

DRUGS (1)
  1. LISINOPRIL [Suspect]
     Active Substance: LISINOPRIL
     Indication: Hypertension
     Dates: end: 20240719

REACTIONS (9)
  - Viral infection [None]
  - Dehydration [None]
  - Dizziness [None]
  - Malaise [None]
  - Hepatitis acute [None]
  - Hepatotoxicity [None]
  - Tick-borne fever [None]
  - Babesiosis [None]
  - Lyme disease [None]

NARRATIVE: CASE EVENT DATE: 20240715
